FAERS Safety Report 11197223 (Version 3)
Quarter: 2018Q3

REPORT INFORMATION
  Report Type: Report from Study
  Country: US (occurrence: US)
  Receive Date: 20150617
  Receipt Date: 20180727
  Transmission Date: 20181010
  Serious: Yes (Other)
  Sender: FDA-Public Use
  Company Number: US-SA-2014SA152626

PATIENT
  Age: 52 Year
  Sex: Male

DRUGS (1)
  1. CEREZYME [Suspect]
     Active Substance: IMIGLUCERASE
     Indication: GAUCHER^S DISEASE
     Dosage: 6000 DF,QM
     Route: 041
     Dates: start: 20010509

REACTIONS (5)
  - Dyschezia [Not Recovered/Not Resolved]
  - Haemorrhoids [Recovered/Resolved]
  - Weight decreased [Unknown]
  - Bone pain [Recovered/Resolved]
  - Pain [Recovered/Resolved]

NARRATIVE: CASE EVENT DATE: 201410
